FAERS Safety Report 13097799 (Version 1)
Quarter: 2017Q1

REPORT INFORMATION
  Report Type: Report from Study
  Country: CA (occurrence: CA)
  Receive Date: 20170109
  Receipt Date: 20170109
  Transmission Date: 20170428
  Serious: Yes (Hospitalization, Other)
  Sender: FDA-Public Use
  Company Number: CA-AMGEN-CANSL2017001004

PATIENT
  Age: 57 Year
  Sex: Male

DRUGS (1)
  1. REPATHA [Suspect]
     Active Substance: EVOLOCUMAB
     Indication: TYPE IIA HYPERLIPIDAEMIA
     Dosage: 140 MG/ML, UNK
     Route: 058
     Dates: start: 20160923

REACTIONS (2)
  - Influenza like illness [Not Recovered/Not Resolved]
  - Acute myocardial infarction [Unknown]

NARRATIVE: CASE EVENT DATE: 20170101
